FAERS Safety Report 16005947 (Version 1)
Quarter: 2019Q1

REPORT INFORMATION
  Report Type: Spontaneous
  Country: US (occurrence: US)
  Receive Date: 20190226
  Receipt Date: 20190226
  Transmission Date: 20190418
  Serious: No
  Sender: FDA-Public Use
  Company Number: US-BAYER-2019-037428

PATIENT
  Age: 18 Year
  Sex: Female

DRUGS (2)
  1. IUD NOS [Suspect]
     Active Substance: COPPER OR LEVONORGESTREL
     Dosage: UNK
     Route: 015
  2. YAZ [Suspect]
     Active Substance: DROSPIRENONE\ETHINYL ESTRADIOL
     Indication: GENITAL HAEMORRHAGE
     Dosage: UNK UNK, QD
     Route: 048
     Dates: start: 2016, end: 201812

REACTIONS (5)
  - Product use in unapproved indication [Recovered/Resolved]
  - Drug ineffective for unapproved indication [Recovered/Resolved]
  - Adverse event [None]
  - Weight increased [None]
  - Medical device discomfort [None]

NARRATIVE: CASE EVENT DATE: 2016
